FAERS Safety Report 7132520-3 (Version None)
Quarter: 2010Q4

REPORT INFORMATION
  Report Type: 
  Country: None (occurrence: None)
  Receive Date: 20101202
  Receipt Date: 20101124
  Transmission Date: 20110411
  Serious: Yes (Other)
  Sender: FDA-Public Use
  Company Number: FR-ROCHE-744556

PATIENT
  Sex: Female

DRUGS (3)
  1. AVASTIN [Suspect]
     Indication: RECTAL CANCER METASTATIC
     Dosage: FORM: INFUSION; STRENGTH: 25 MG/ML, RECEIVED 4 CYCLES
     Route: 042
     Dates: start: 20100511, end: 20100622
  2. OXALIPLATIN [Concomitant]
  3. 5-FU [Concomitant]

REACTIONS (1)
  - PERIPHERAL ISCHAEMIA [None]
